FAERS Safety Report 7508986-3 (Version None)
Quarter: 2011Q2

REPORT INFORMATION
  Report Type: 
  Country: None (occurrence: None)
  Receive Date: 20110527
  Receipt Date: 20110513
  Transmission Date: 20111010
  Serious: Yes (Hospitalization)
  Sender: FDA-Public Use
  Company Number: GB-JNJFOC-20110507042

PATIENT
  Sex: Female
  Weight: 49.9 kg

DRUGS (8)
  1. ACETAMINOPHEN [Concomitant]
  2. OMEPRAZOLE [Concomitant]
  3. RANITIDINE [Concomitant]
  4. CANESTEN HC [Concomitant]
  5. AZATHIOPRINE [Concomitant]
  6. HUMIRA [Concomitant]
     Dates: start: 20091002, end: 20110429
  7. REMICADE [Suspect]
     Indication: CROHN'S DISEASE
     Route: 042
     Dates: start: 20081208, end: 20090807
  8. HYOSCINE HBR HYT [Concomitant]

REACTIONS (1)
  - ADHESION [None]
